FAERS Safety Report 5121620-5 (Version None)
Quarter: 2006Q4

REPORT INFORMATION
  Report Type: 
  Country: None (occurrence: None)
  Receive Date: 20061006
  Receipt Date: 20060405
  Transmission Date: 20070319
  Serious: Yes (Life-Threatening)
  Sender: FDA-Public Use
  Company Number: JP-AVENTIS-200611099JP

PATIENT
  Age: 80 Year
  Sex: Female
  Weight: 37.9 kg

DRUGS (7)
  1. ALLEGRA [Suspect]
     Indication: SEASONAL ALLERGY
     Route: 048
     Dates: start: 20051001
  2. ALLEGRA [Suspect]
     Route: 048
     Dates: start: 20060301, end: 20060330
  3. ALLEGRA [Suspect]
     Route: 048
     Dates: start: 20060331, end: 20060401
  4. ALLEGRA [Suspect]
     Route: 048
     Dates: start: 20060405, end: 20060405
  5. LAMISIL [Concomitant]
     Indication: TINEA PEDIS
     Route: 048
     Dates: start: 20040101, end: 20060401
  6. PURSENNID [Concomitant]
     Indication: CONSTIPATION
     Route: 048
     Dates: start: 20040101
  7. PRAVASTATIN SODIUM [Concomitant]
     Indication: HYPERLIPIDAEMIA
     Route: 048
     Dates: start: 20040101

REACTIONS (4)
  - ATRIOVENTRICULAR BLOCK THIRD DEGREE [None]
  - DIZZINESS [None]
  - DRUG INTERACTION [None]
  - INCORRECT DOSE ADMINISTERED [None]
